FAERS Safety Report 7951382-5 (Version None)
Quarter: 2011Q4

REPORT INFORMATION
  Report Type: 
  Country: None (occurrence: None)
  Receive Date: 20111129
  Receipt Date: 20111110
  Transmission Date: 20120403
  Serious: Yes (Hospitalization)
  Sender: FDA-Public Use
  Company Number: 2011SP053235

PATIENT
  Age: 81 Year
  Sex: Female

DRUGS (9)
  1. CARDICOR [Concomitant]
  2. ASPIRIN [Concomitant]
  3. PRAVAT (PRAVASTATIN) [Concomitant]
  4. RAMIC (RAMIPRIL) [Concomitant]
  5. TEMODAL [Suspect]
     Indication: MALIGNANT MELANOMA
     Dosage: 250 MG
     Dates: start: 20111012
  6. PROTELOS [Concomitant]
  7. CALCIUM CARBONATE [Concomitant]
  8. DEXAMETHASONE [Concomitant]
  9. KYTRIL [Concomitant]

REACTIONS (2)
  - PAIN IN EXTREMITY [None]
  - ARTHRALGIA [None]
